FAERS Safety Report 18561647 (Version 1)
Quarter: 2020Q4

REPORT INFORMATION
  Report Type: Spontaneous
  Country: US (occurrence: US)
  Receive Date: 20201130
  Receipt Date: 20201130
  Transmission Date: 20210114
  Serious: No
  Sender: FDA-Public Use
  Company Number: US-ROCHE-2635909

PATIENT
  Sex: Female

DRUGS (5)
  1. HERCEPTIN [Suspect]
     Active Substance: TRASTUZUMAB
     Indication: HER2 POSITIVE BREAST CANCER
     Dosage: STARTED MAY/2019 OR JUN/2019 RECEIVED 6 ROUNDS ;ONGOING: NO
     Route: 065
     Dates: start: 2019
  2. TAXOTERE [Concomitant]
     Active Substance: DOCETAXEL
     Indication: HER2 POSITIVE BREAST CANCER
     Dosage: STARTED MAY-2019 OR JUN-2019 6 ROUNDS ;ONGOING: NO
     Dates: start: 2019
  3. CARBOPLATIN. [Concomitant]
     Active Substance: CARBOPLATIN
     Indication: HER2 POSITIVE BREAST CANCER
     Dosage: STARTED MAY-2019 OR JUN-2019 6 ROUNDS ;ONGOING: NO
     Dates: start: 2019
  4. PERJETA [Suspect]
     Active Substance: PERTUZUMAB
     Indication: HER2 POSITIVE BREAST CANCER
     Dosage: STARTED MAY-2019 OR JUN-2019 RECEIVED 6 ROUNDS ;ONGOING: NO
     Route: 065
  5. KADCYLA [Suspect]
     Active Substance: ADO-TRASTUZUMAB EMTANSINE
     Indication: HER2 POSITIVE BREAST CANCER
     Dosage: STARTED AFTER LUMPECTOMY ;ONGOING: YES
     Route: 065

REACTIONS (6)
  - Hypoaesthesia [Unknown]
  - Fatigue [Unknown]
  - Epistaxis [Unknown]
  - Neuropathy peripheral [Unknown]
  - Diarrhoea [Recovered/Resolved]
  - Headache [Unknown]
